FAERS Safety Report 17599913 (Version 1)
Quarter: 2020Q1

REPORT INFORMATION
  Report Type: Spontaneous
  Country: US (occurrence: US)
  Receive Date: 20200330
  Receipt Date: 20200330
  Transmission Date: 20200409
  Serious: Yes (Other)
  Sender: FDA-Public Use
  Company Number: US-PFIZER INC-2020129494

PATIENT
  Age: 67 Year
  Sex: Female
  Weight: 100.68 kg

DRUGS (3)
  1. CELEBREX [Suspect]
     Active Substance: CELECOXIB
     Indication: ARTHRITIS
     Dosage: 200 MG, DAILY (1-200MG CAPSULE TAKEN BY MOUTH DAILY)
     Route: 048
  2. DETROL LA [Suspect]
     Active Substance: TOLTERODINE TARTRATE
     Indication: URINARY INCONTINENCE
     Dosage: 4 MG, DAILY (1-4MG CAPLET BY MOUTH DAILY)
     Route: 048
  3. PRISTIQ EXTENDED-RELEASE [Suspect]
     Active Substance: DESVENLAFAXINE SUCCINATE
     Indication: DEPRESSION
     Dosage: 100 MG, DAILY (1-100MG SQUARE TABLET TAKEN BY MOUTH DAILY)
     Route: 048

REACTIONS (7)
  - Drug ineffective [Unknown]
  - Arthropathy [Recovered/Resolved]
  - Fall [Unknown]
  - Haemorrhage [Unknown]
  - Procedural pain [Recovering/Resolving]
  - Arthritis [Unknown]
  - Musculoskeletal pain [Recovered/Resolved]

NARRATIVE: CASE EVENT DATE: 2000
